FAERS Safety Report 5068623-7 (Version None)
Quarter: 2006Q3

REPORT INFORMATION
  Report Type: 
  Country: None (occurrence: None)
  Receive Date: 20060802
  Receipt Date: 20060111
  Transmission Date: 20061208
  Serious: No
  Sender: FDA-Public Use
  Company Number: US-BRISTOL-MYERS SQUIBB COMPANY-13243738

PATIENT
  Age: 81 Year
  Sex: Male
  Weight: 127 kg

DRUGS (6)
  1. COUMADIN [Suspect]
     Indication: ATRIAL FIBRILLATION
     Dosage: 5MG DAILY FOR 1 DAY A WEEK, 2.5MG DAILY FOR 6 DAYS A WEEK
  2. CASODEX [Suspect]
     Dates: start: 20051210
  3. ALPHAGAN [Concomitant]
  4. CHEMOTHERAPY [Concomitant]
     Dosage: WITH AT LEAST 3 DIFFERENT MEDICATIONS (NAMES UNAVAILABLE)
     Route: 043
  5. DETROL LA [Concomitant]
  6. LUPRON [Concomitant]
     Route: 051

REACTIONS (2)
  - PROTHROMBIN TIME PROLONGED [None]
  - WEIGHT INCREASED [None]
